FAERS Safety Report 10247437 (Version 1)
Quarter: 2014Q2

REPORT INFORMATION
  Report Type: Report from Study
  Country: CA (occurrence: CA)
  Receive Date: 20140619
  Receipt Date: 20140619
  Transmission Date: 20141212
  Serious: Yes (Hospitalization)
  Sender: FDA-Public Use
  Company Number: CA-BRISTOL-MYERS SQUIBB COMPANY-20999827

PATIENT
  Age: 74 Year
  Sex: Male

DRUGS (9)
  1. ORENCIA [Suspect]
     Indication: RHEUMATOID ARTHRITIS
     Route: 042
     Dates: start: 20101026
  2. PREDNISONE [Concomitant]
  3. LIPITOR [Concomitant]
  4. FLOMAX [Concomitant]
     Dosage: FLOMAX CR
  5. INDAPAMIDE [Concomitant]
  6. FOSAVANCE [Concomitant]
  7. CARBOCAL [Concomitant]
  8. METHOTREXATE [Concomitant]
  9. APO-FOLIC [Concomitant]

REACTIONS (1)
  - Depression [Unknown]
